FAERS Safety Report 4288953-6 (Version None)
Quarter: 2004Q1

REPORT INFORMATION
  Report Type: 
  Country: None (occurrence: None)
  Receive Date: 20040206
  Receipt Date: 20040130
  Transmission Date: 20041129
  Serious: Yes (Hospitalization, Other)
  Sender: FDA-Public Use
  Company Number: 2003181060US

PATIENT
  Age: 78 Year
  Sex: Female
  Weight: 55.3 kg

DRUGS (3)
  1. CELEBREX [Suspect]
     Indication: PAIN
     Dosage: 400 MG, BID, ORAL
     Route: 048
     Dates: start: 20020101, end: 20021201
  2. DIOVAN [Concomitant]
  3. AMBIEN [Concomitant]

REACTIONS (4)
  - GASTRIC ULCER [None]
  - GASTROINTESTINAL HAEMORRHAGE [None]
  - HYPOVOLAEMIA [None]
  - MALAISE [None]
